FAERS Safety Report 7629092-3 (Version None)
Quarter: 2011Q3

REPORT INFORMATION
  Report Type: 
  Country: None (occurrence: None)
  Receive Date: 20110722
  Receipt Date: 20110722
  Transmission Date: 20111222
  Serious: No
  Sender: FDA-Public Use
  Company Number: None

PATIENT
  Age: 37 Year
  Sex: Male
  Weight: 83.914 kg

DRUGS (1)
  1. LARIAM [Suspect]
     Indication: MALARIA PROPHYLAXIS
     Dates: start: 19930401, end: 19931001

REACTIONS (18)
  - HYPOAESTHESIA [None]
  - TINNITUS [None]
  - SUICIDAL IDEATION [None]
  - COORDINATION ABNORMAL [None]
  - MEMORY IMPAIRMENT [None]
  - MOOD ALTERED [None]
  - PARAESTHESIA [None]
  - INFLUENZA LIKE ILLNESS [None]
  - MENTAL DISORDER [None]
  - CONFUSIONAL STATE [None]
  - DEPRESSION [None]
  - ALOPECIA [None]
  - DYSPNOEA [None]
  - BALANCE DISORDER [None]
  - ANXIETY [None]
  - FATIGUE [None]
  - PARANOIA [None]
  - RESTLESSNESS [None]
